FAERS Safety Report 9746273 (Version 3)
Quarter: 2014Q2

REPORT INFORMATION
  Report Type: Spontaneous
  Country: US (occurrence: US)
  Receive Date: 20131211
  Receipt Date: 20140429
  Transmission Date: 20141212
  Serious: Yes (Hospitalization, Other)
  Sender: FDA-Public Use
  Company Number: US-UCBSA-105049

PATIENT
  Age: 52 Year
  Sex: Female
  Weight: 90.71 kg

DRUGS (15)
  1. CIMZIA [Suspect]
     Indication: CROHN^S DISEASE
     Route: 058
     Dates: start: 201309, end: 201312
  2. WELCHOL [Concomitant]
     Indication: DIARRHOEA
     Dosage: TAKING FOR 3-4 WEEKS
     Route: 048
  3. PREDNISONE [Concomitant]
     Dosage: WEEKLY SLIDING SCALE, 30MG 1 WEEK, 20MG FOR 2 WEEKS THN 10MG FOR 1 MONTH
     Route: 048
  4. EFFEXOR [Concomitant]
     Indication: DEPRESSION
     Dosage: TAKING FOR 2 MONTHS
     Route: 048
  5. AMITRYPTILINE [Concomitant]
     Dosage: FOR 1 MONTH
     Route: 048
  6. TOPAMAX [Concomitant]
     Route: 048
  7. VITAMIN D [Concomitant]
     Dosage: FOR 12 WEEKS
     Route: 048
  8. PHENERGAN [Concomitant]
     Route: 048
  9. CALCIUM [Concomitant]
     Indication: MINERAL SUPPLEMENTATION
     Route: 048
  10. XANAX [Concomitant]
     Indication: ANXIETY
     Dosage: ONCE IN 4-6HRS
     Route: 048
  11. PHENAZOPYRIDINE [Concomitant]
     Indication: URINARY TRACT DISORDER
     Route: 048
  12. MORPHINE XR [Concomitant]
     Indication: PAIN
     Route: 048
  13. PERCOCET [Concomitant]
     Indication: PAIN
     Route: 048
  14. IOPERAMIDE [Concomitant]
     Dosage: 2 CAPSULES 3 TIMES A DAY
     Route: 048
  15. CARZEZILOL [Concomitant]
     Indication: BLOOD PRESSURE
     Route: 048

REACTIONS (11)
  - Dyspnoea [Not Recovered/Not Resolved]
  - Syncope [Not Recovered/Not Resolved]
  - Lung disorder [Not Recovered/Not Resolved]
  - Blood pressure increased [Recovering/Resolving]
  - Clostridium difficile infection [Recovered/Resolved]
  - Blood potassium decreased [Recovering/Resolving]
  - Blood calcium decreased [Recovering/Resolving]
  - Vitamin D decreased [Recovering/Resolving]
  - Crohn^s disease [Not Recovered/Not Resolved]
  - Dehydration [Not Recovered/Not Resolved]
  - Gastrooesophageal reflux disease [Recovering/Resolving]
